FAERS Safety Report 12959737 (Version 1)
Quarter: 2016Q4

REPORT INFORMATION
  Report Type: Spontaneous
  Country: US (occurrence: US)
  Receive Date: 20161121
  Receipt Date: 20161121
  Transmission Date: 20170207
  Serious: No
  Sender: FDA-Public Use
  Company Number: US-JNJFOC-20161019100

PATIENT
  Age: 4 Year
  Sex: Male
  Weight: 15.88 kg

DRUGS (2)
  1. CHILDRENS MOTRIN [Suspect]
     Active Substance: IBUPROFEN
     Route: 048
  2. CHILDRENS MOTRIN [Suspect]
     Active Substance: IBUPROFEN
     Indication: PROPHYLAXIS
     Route: 048
     Dates: start: 20161015, end: 20161015

REACTIONS (3)
  - Product physical issue [Unknown]
  - Product taste abnormal [None]
  - Intentional product use issue [Unknown]

NARRATIVE: CASE EVENT DATE: 20161015
